FAERS Safety Report 12064453 (Version 1)
Quarter: 2016Q1

REPORT INFORMATION
  Report Type: Spontaneous
  Country: US (occurrence: US)
  Receive Date: 20160210
  Receipt Date: 20160210
  Transmission Date: 20160526
  Serious: No
  Sender: FDA-Public Use
  Company Number: US-ALLERGAN-1515045US

PATIENT
  Age: 55 Year
  Sex: Female

DRUGS (3)
  1. BOTOX COSMETIC [Suspect]
     Active Substance: ONABOTULINUMTOXINA
     Indication: SKIN WRINKLING
     Dosage: 29 UNITS, SINGLE
     Dates: start: 201505, end: 201505
  2. BOTOX COSMETIC [Suspect]
     Active Substance: ONABOTULINUMTOXINA
     Indication: SKIN WRINKLING
     Dosage: 3 UNITS, SINGLE
     Dates: start: 201505, end: 201505
  3. BOTOX COSMETIC [Suspect]
     Active Substance: ONABOTULINUMTOXINA
     Indication: SKIN WRINKLING
     Dosage: 4 UNITS, SINGLE
     Dates: start: 201505, end: 201505

REACTIONS (6)
  - Dyspnoea [Recovered/Resolved]
  - Influenza like illness [Recovered/Resolved]
  - Drug administered at inappropriate site [Unknown]
  - Asthenia [Recovered/Resolved]
  - Dysarthria [Recovered/Resolved]
  - Urinary incontinence [Recovered/Resolved]

NARRATIVE: CASE EVENT DATE: 201505
